FAERS Safety Report 7077660-2 (Version None)
Quarter: 2010Q4

REPORT INFORMATION
  Report Type: 
  Country: None (occurrence: None)
  Receive Date: 20101101
  Receipt Date: 20100928
  Transmission Date: 20110411
  Serious: No
  Sender: FDA-Public Use
  Company Number: US-BAYER-201035290NA

PATIENT
  Age: 42 Year
  Sex: Female
  Weight: 71 kg

DRUGS (5)
  1. ULTRAVIST 370 [Suspect]
     Indication: COMPUTERISED TOMOGRAM ABDOMEN
     Dosage: AS USED: 80 ML  UNIT DOSE: 500 ML
     Route: 042
     Dates: start: 20100928, end: 20100928
  2. ESTROGENS [Concomitant]
  3. LACTULOSE [Concomitant]
  4. SULINDAC [Concomitant]
  5. ULTRAVIST 370 [Concomitant]
     Indication: COMPUTERISED TOMOGRAM ABDOMEN
     Route: 048
     Dates: start: 20100928, end: 20100928

REACTIONS (2)
  - PRURITUS [None]
  - URTICARIA [None]
